FAERS Safety Report 9599425 (Version 1)
Quarter: 2013Q4

REPORT INFORMATION
  Report Type: Spontaneous
  Country: US (occurrence: US)
  Receive Date: 20131004
  Receipt Date: 20131004
  Transmission Date: 20140711
  Serious: No
  Sender: FDA-Public Use
  Company Number: US-AMGEN-USASP2013029004

PATIENT
  Age: 64 Year
  Sex: Female
  Weight: 83.45 kg

DRUGS (7)
  1. ENBREL [Suspect]
     Indication: PRODUCT USED FOR UNKNOWN INDICATION
     Dosage: 50 MG, QWK
     Route: 058
  2. MORPHINE SULFATE [Concomitant]
     Dosage: 100 MG, UNK
     Route: 048
  3. PERCOCET                           /00446701/ [Concomitant]
     Dosage: 10-325 MG, UNK
     Route: 048
  4. SULFASALAZIN [Concomitant]
     Dosage: 500 MG, UNK
     Route: 048
  5. FOLIC ACID [Concomitant]
     Dosage: UNK
     Route: 048
  6. AMITRIPTYLIN [Concomitant]
     Dosage: 100 MG, UNK
     Route: 048
  7. ATENOLOL [Concomitant]
     Dosage: 50 MG, UNK
     Route: 048

REACTIONS (4)
  - Injection site pain [Unknown]
  - Injection site bruising [Unknown]
  - Injection site haemorrhage [Unknown]
  - Injection site swelling [Unknown]
